FAERS Safety Report 22960845 (Version 2)
Quarter: 2023Q4

REPORT INFORMATION
  Report Type: Spontaneous
  Country: US (occurrence: US)
  Receive Date: 20230920
  Receipt Date: 20231109
  Transmission Date: 20240109
  Serious: Yes (Other)
  Sender: FDA-Public Use
  Company Number: US-HBP-2023US029508

PATIENT
  Sex: Female

DRUGS (3)
  1. VALCHLOR [Suspect]
     Active Substance: MECHLORETHAMINE
     Indication: Cutaneous T-cell lymphoma
     Dosage: THIN FILM, UNKNOWN
     Route: 061
     Dates: start: 20200116, end: 20200731
  2. VALCHLOR [Suspect]
     Active Substance: MECHLORETHAMINE
     Dosage: THIN FILM, 1/WEEK
     Route: 061
     Dates: start: 20230706, end: 20231003
  3. VALCHLOR [Suspect]
     Active Substance: MECHLORETHAMINE
     Dosage: THIN FILM, 2/WEEK ON THE WEEKENDS
     Route: 061
     Dates: start: 20231004

REACTIONS (1)
  - Application site necrosis [Recovered/Resolved]
